FAERS Safety Report 20445981 (Version 5)
Quarter: 2023Q1

REPORT INFORMATION
  Report Type: Report from Study
  Country: US (occurrence: US)
  Receive Date: 20220208
  Receipt Date: 20230215
  Transmission Date: 20230418
  Serious: Yes (Other)
  Sender: FDA-Public Use
  Company Number: US-NOVARTISTESTPH-NVSC2022US027224

PATIENT
  Age: 43 Year
  Sex: Female

DRUGS (1)
  1. KESIMPTA [Suspect]
     Active Substance: OFATUMUMAB
     Indication: Relapsing-remitting multiple sclerosis
     Dosage: 20 MG, QMO
     Route: 058
     Dates: start: 20220203

REACTIONS (11)
  - Multiple sclerosis [Unknown]
  - Influenza like illness [Recovered/Resolved]
  - Throat irritation [Unknown]
  - Pyrexia [Unknown]
  - Pain [Unknown]
  - Muscle spasms [Unknown]
  - Fall [Unknown]
  - Hand fracture [Unknown]
  - Contusion [Unknown]
  - Swelling [Unknown]
  - Headache [Unknown]

NARRATIVE: CASE EVENT DATE: 20220203
